FAERS Safety Report 11047151 (Version 1)
Quarter: 2015Q2

REPORT INFORMATION
  Report Type: Report from Study
  Country: BE (occurrence: BE)
  Receive Date: 20150420
  Receipt Date: 20150420
  Transmission Date: 20150821
  Serious: Yes (Hospitalization)
  Sender: FDA-Public Use
  Company Number: BE-BIOGENIDEC-2015BI047822

PATIENT
  Age: 53 Year
  Sex: Female

DRUGS (7)
  1. TOTALIP [Concomitant]
     Active Substance: ATORVASTATIN
  2. AVONEX [Suspect]
     Active Substance: INTERFERON BETA-1A
     Indication: PRODUCT USED FOR UNKNOWN INDICATION
     Route: 030
     Dates: start: 20030709
  3. BISOPROLOL [Concomitant]
     Active Substance: BISOPROLOL
  4. ASAFLOW [Concomitant]
     Active Substance: ASPIRIN
  5. COVERSUL [Concomitant]
  6. ZOCOR [Concomitant]
     Active Substance: SIMVASTATIN
  7. EFIENT [Concomitant]
     Active Substance: PRASUGREL HYDROCHLORIDE

REACTIONS (1)
  - Myocardial infarction [Unknown]

NARRATIVE: CASE EVENT DATE: 20150310
